FAERS Safety Report 21885836 (Version 7)
Quarter: 2024Q2

REPORT INFORMATION
  Report Type: Report from Study
  Country: BR (occurrence: BR)
  Receive Date: 20230119
  Receipt Date: 20240611
  Transmission Date: 20240716
  Serious: Yes (Hospitalization, Other)
  Sender: FDA-Public Use
  Company Number: BR-TAKEDA-2021TUS014384

PATIENT
  Age: 27 Year
  Sex: Female

DRUGS (5)
  1. VEDOLIZUMAB [Suspect]
     Active Substance: VEDOLIZUMAB
     Indication: Crohn^s disease
     Dosage: 300 MILLIGRAM
     Route: 042
     Dates: start: 20180808
  2. VEDOLIZUMAB [Suspect]
     Active Substance: VEDOLIZUMAB
     Dosage: 300 MILLIGRAM, Q4WEEKS
     Route: 042
     Dates: start: 20230515
  3. VEDOLIZUMAB [Suspect]
     Active Substance: VEDOLIZUMAB
     Dosage: 300 MILLIGRAM
     Route: 042
  4. VEDOLIZUMAB [Suspect]
     Active Substance: VEDOLIZUMAB
     Dosage: 300 MILLIGRAM, Q4WEEKS
     Route: 042
  5. AZATHIOPRINE [Concomitant]
     Active Substance: AZATHIOPRINE
     Dosage: UNK

REACTIONS (14)
  - Crohn^s disease [Unknown]
  - Intestinal stenosis [Recovered/Resolved]
  - Abdominal abscess [Unknown]
  - Fistula [Unknown]
  - Cerebral thrombosis [Unknown]
  - Viral infection [Unknown]
  - Diarrhoea [Unknown]
  - Hypophagia [Unknown]
  - Productive cough [Unknown]
  - Pharyngeal inflammation [Unknown]
  - Inappropriate schedule of product administration [Recovered/Resolved]
  - Product availability issue [Unknown]
  - Urinary tract infection [Unknown]
  - Vomiting [Unknown]

NARRATIVE: CASE EVENT DATE: 20210909
